FAERS Safety Report 6839645-8 (Version None)
Quarter: 2010Q3

REPORT INFORMATION
  Report Type: 
  Country: None (occurrence: None)
  Receive Date: 20100714
  Receipt Date: 20100708
  Transmission Date: 20110219
  Serious: Yes (Hospitalization, Disabling, Other)
  Sender: FDA-Public Use
  Company Number: GB-B.I. PHARMACEUTICALS,INC./RIDGEFIELD-2010-UK-00652UK

PATIENT
  Age: 71 Year
  Sex: Female

DRUGS (17)
  1. COMBIVENT [Suspect]
     Indication: CHRONIC OBSTRUCTIVE PULMONARY DISEASE
     Dosage: 10 ML
     Route: 055
     Dates: end: 20100623
  2. SALBUTAMOL [Suspect]
     Indication: CHRONIC OBSTRUCTIVE PULMONARY DISEASE
     Route: 055
  3. ALENDRONIC ACID [Concomitant]
  4. ATORVASTATIN CALCIUM [Concomitant]
  5. BUMETANIDE [Concomitant]
  6. CANDESARTAN CILEXETIL [Concomitant]
  7. CLOPIDOGREL HYDROGEN SULPHATE [Concomitant]
  8. DIGOXIN [Concomitant]
  9. GLYCERYL TRINITRATE [Concomitant]
  10. HUMALOG [Concomitant]
  11. IPRATROPIUM BROMIDE [Concomitant]
  12. ISOSORBIDE MONONITRATE [Concomitant]
  13. LANSOPRAZOLE [Concomitant]
  14. METOCLOPRAMIDE [Concomitant]
  15. OXYCODONE HCL [Concomitant]
  16. PREDNISOLONE [Concomitant]
  17. SERETIDE [Concomitant]

REACTIONS (5)
  - ACUTE MYOCARDIAL INFARCTION [None]
  - CHEST PAIN [None]
  - CONDITION AGGRAVATED [None]
  - DYSPNOEA [None]
  - TACHYCARDIA [None]
